FAERS Safety Report 6634052-5 (Version None)
Quarter: 2010Q1

REPORT INFORMATION
  Report Type: 
  Country: None (occurrence: None)
  Receive Date: 20100315
  Receipt Date: 20100310
  Transmission Date: 20100710
  Serious: Yes (Death, Other)
  Sender: FDA-Public Use
  Company Number: PHEH2010US02975

PATIENT
  Sex: Male

DRUGS (15)
  1. SANDOSTATIN LAR [Suspect]
     Indication: CHRONIC HEPATIC FAILURE
     Dosage: EVERY 4 WEEKS
     Route: 030
     Dates: start: 20091230, end: 20100226
  2. SANDOSTATIN LAR [Suspect]
     Indication: HYPOTENSION
  3. SANDOSTATIN LAR [Suspect]
     Indication: HEPATORENAL SYNDROME
  4. FELODIPINE [Concomitant]
     Dosage: 1 TAB PO QD
     Dates: start: 20080429, end: 20080515
  5. LISINOPRIL [Concomitant]
     Dosage: 1 TAB PO QD
     Dates: start: 20080429, end: 20080515
  6. TORSEMIDE [Concomitant]
     Dosage: 1 TAB PO TID
     Dates: start: 20080429, end: 20080515
  7. VANCOMYCIN [Concomitant]
     Dosage: 1500 MG IV INFUSION
     Dates: start: 20091231, end: 20100121
  8. EPOGEN [Concomitant]
     Dosage: 2200 UNITS IV PUSH 2X QW
     Dates: start: 20100212, end: 20100224
  9. EPOGEN [Concomitant]
     Dosage: 2200 UNITS IV PUSH 3X QW
     Dates: start: 20100129, end: 20100212
  10. EPOGEN [Concomitant]
     Dosage: 4400 UNITS IV PUSH 3X QW
     Dates: start: 20100113, end: 20100128
  11. VENOFER [Concomitant]
     Dosage: 100 MG IV PUSH QM W1
     Dates: start: 20100210
  12. PHOSLO [Concomitant]
     Dosage: 2 TABS PO TID UNK
     Dates: start: 20100213
  13. PHOSLO [Concomitant]
     Dosage: UNK
     Dates: start: 20091118, end: 20100213
  14. CALCITRIOL [Concomitant]
     Dosage: 1 CAP PO QD
     Dates: start: 20080429, end: 20080515
  15. CALCITRIOL [Concomitant]
     Dosage: 1 CAP PO WEEKLY
     Dates: start: 20081031

REACTIONS (21)
  - BLOOD CALCIUM DECREASED [None]
  - BLOOD CHLORIDE DECREASED [None]
  - BLOOD CREATININE INCREASED [None]
  - BLOOD IRON DECREASED [None]
  - BLOOD PARATHYROID HORMONE INCREASED [None]
  - BLOOD PHOSPHORUS INCREASED [None]
  - CARBON DIOXIDE DECREASED [None]
  - DEATH [None]
  - EOSINOPHIL COUNT INCREASED [None]
  - HAEMOGLOBIN DECREASED [None]
  - IRON BINDING CAPACITY TOTAL DECREASED [None]
  - IRON BINDING CAPACITY UNSATURATED DECREASED [None]
  - LYMPHOCYTE COUNT DECREASED [None]
  - MEAN CELL HAEMOGLOBIN CONCENTRATION DECREASED [None]
  - MEAN PLATELET VOLUME INCREASED [None]
  - PAIN IN EXTREMITY [None]
  - PROTEIN TOTAL DECREASED [None]
  - RED CELL DISTRIBUTION WIDTH INCREASED [None]
  - SERUM FERRITIN INCREASED [None]
  - VITAMIN D DEFICIENCY [None]
  - WHITE BLOOD CELL COUNT INCREASED [None]
